FAERS Safety Report 18912216 (Version 2)
Quarter: 2021Q1

REPORT INFORMATION
  Report Type: Spontaneous
  Country: NO (occurrence: NO)
  Receive Date: 20210219
  Receipt Date: 20210219
  Transmission Date: 20210420
  Serious: Yes (Disabling)
  Sender: FDA-Public Use
  Company Number: NO-009507513-2102NOR006754

PATIENT
  Age: 53 Year
  Sex: Female
  Weight: 64 kg

DRUGS (4)
  1. AERIUS (DESLORATADINE) [Suspect]
     Active Substance: DESLORATADINE
     Indication: HYPERSENSITIVITY
  2. MAGNESIUM (UNSPECIFIED) [Concomitant]
     Active Substance: MAGNESIUM
  3. ASCORBIC ACID. [Concomitant]
     Active Substance: ASCORBIC ACID
  4. AERIUS (DESLORATADINE) [Suspect]
     Active Substance: DESLORATADINE
     Indication: URTICARIA
     Dosage: 5 MILLIGRAM, QD
     Route: 048
     Dates: start: 20210119, end: 20210131

REACTIONS (3)
  - Neuralgia [Recovering/Resolving]
  - Musculoskeletal stiffness [Recovering/Resolving]
  - Connective tissue disorder [Recovering/Resolving]

NARRATIVE: CASE EVENT DATE: 20210128
